FAERS Safety Report 6875822-8 (Version None)
Quarter: 2010Q3

REPORT INFORMATION
  Report Type: 
  Country: None (occurrence: None)
  Receive Date: 20100727
  Receipt Date: 20070712
  Transmission Date: 20110219
  Serious: Yes (Hospitalization, Other)
  Sender: FDA-Public Use
  Company Number: US-PFIZER INC-2006149635

PATIENT
  Sex: Male

DRUGS (8)
  1. CELEBREX [Suspect]
     Indication: ARTHRALGIA
     Route: 048
     Dates: start: 19990401
  2. VIOXX [Suspect]
     Indication: ARTHRALGIA
     Route: 048
     Dates: start: 20030901
  3. ASPIRIN [Concomitant]
  4. LOVASTATIN [Concomitant]
  5. RABEPRAZOLE SODIUM [Concomitant]
  6. SIMVASTATIN [Concomitant]
  7. BENAZEPRIL HYDROCHLORIDE [Concomitant]
  8. NITROGLYCERIN [Concomitant]

REACTIONS (4)
  - CEREBROVASCULAR ACCIDENT [None]
  - DEEP VEIN THROMBOSIS [None]
  - MYOCARDIAL INFARCTION [None]
  - VISION BLURRED [None]
